FAERS Safety Report 26084696 (Version 1)
Quarter: 2025Q4

REPORT INFORMATION
  Report Type: Report from Study
  Country: CA (occurrence: CA)
  Receive Date: 20251124
  Receipt Date: 20251124
  Transmission Date: 20260118
  Serious: Yes (Death)
  Sender: ABBVIE
  Company Number: CA-ABBVIE-6561543

PATIENT
  Age: 87 Year
  Sex: Male

DRUGS (1)
  1. LUPRON [Suspect]
     Active Substance: LEUPROLIDE ACETATE
     Indication: Prostate cancer
     Dosage: EVERY FOUR MONTH
     Route: 065
     Dates: start: 20220407

REACTIONS (1)
  - Death [Fatal]
